FAERS Safety Report 4390804-6 (Version None)
Quarter: 2004Q3

REPORT INFORMATION
  Report Type: 
  Country: None (occurrence: None)
  Receive Date: 20040706
  Receipt Date: 20040706
  Transmission Date: 20050211
  Serious: No
  Sender: FDA-Public Use
  Company Number: None

PATIENT
  Age: 77 Year
  Sex: Female
  Weight: 77.5651 kg

DRUGS (5)
  1. PACLITAXEL [Suspect]
     Indication: ENDOMETRIAL CANCER
     Dosage: 265 MG IV Q 21 DAYS
     Route: 042
     Dates: start: 20040625
  2. FAMOTIDINE [Concomitant]
  3. DIPHENHYDRAMINE [Concomitant]
  4. DIPHENHYDRAMINE [Concomitant]
  5. DEXAMETHASONE [Concomitant]

REACTIONS (1)
  - DYSPNOEA [None]
